FAERS Safety Report 14929697 (Version 1)
Quarter: 2018Q2

REPORT INFORMATION
  Report Type: Spontaneous
  Country: NL (occurrence: NL)
  Receive Date: 20180523
  Receipt Date: 20180523
  Transmission Date: 20180711
  Serious: Yes (Death)
  Sender: FDA-Public Use
  Company Number: NL-ASTRAZENECA-2018SE66986

PATIENT
  Age: 23397 Day
  Sex: Female

DRUGS (1)
  1. DAXAS [Suspect]
     Active Substance: ROFLUMILAST
     Route: 048
     Dates: start: 201103, end: 2018

REACTIONS (1)
  - Death [Fatal]

NARRATIVE: CASE EVENT DATE: 20180504
